FAERS Safety Report 9019689 (Version 2)
Quarter: 2013Q1

REPORT INFORMATION
  Report Type: Spontaneous
  Country: US (occurrence: US)
  Receive Date: 20130118
  Receipt Date: 20130129
  Transmission Date: 20140127
  Serious: No
  Sender: FDA-Public Use
  Company Number: US-009507513-1301USA007416

PATIENT
  Sex: Female

DRUGS (5)
  1. PROVENTIL [Suspect]
     Indication: BRONCHITIS
     Dosage: 90 MICROGRAM, 2 PUFF EVERY 4-6 HOURS
     Dates: start: 20120103
  2. AVINZA [Concomitant]
  3. LEXAPRO [Concomitant]
  4. NEXIUM [Concomitant]
  5. IBUPROFEN [Concomitant]

REACTIONS (4)
  - Cough [Not Recovered/Not Resolved]
  - Drug dose omission [Unknown]
  - Product quality issue [Unknown]
  - Unevaluable event [Not Recovered/Not Resolved]
